FAERS Safety Report 7115065-6 (Version None)
Quarter: 2010Q4

REPORT INFORMATION
  Report Type: 
  Country: None (occurrence: None)
  Receive Date: 20101117
  Receipt Date: 20101117
  Transmission Date: 20110411
  Serious: Yes (Life-Threatening, Disabling)
  Sender: FDA-Public Use
  Company Number: None

PATIENT
  Age: 55 Year
  Sex: Female
  Weight: 52.6173 kg

DRUGS (3)
  1. DIDANOSINE  (VIDEX EC) [Suspect]
     Indication: HIV INFECTION
     Dosage: 250 MG DAILY PO
     Route: 048
     Dates: start: 19971201, end: 20101112
  2. EPIVIR [Concomitant]
  3. VIRACEPT [Concomitant]

REACTIONS (8)
  - ANORECTAL VARICES [None]
  - GASTRIC ULCER [None]
  - GASTRITIS [None]
  - HYPOTENSION [None]
  - THROMBOCYTOPENIA [None]
  - UPPER GASTROINTESTINAL HAEMORRHAGE [None]
  - VARICES OESOPHAGEAL [None]
  - WEIGHT DECREASED [None]
